FAERS Safety Report 16068192 (Version 1)
Quarter: 2019Q1

REPORT INFORMATION
  Report Type: Spontaneous
  Country: CZ (occurrence: CZ)
  Receive Date: 20190313
  Receipt Date: 20190313
  Transmission Date: 20190418
  Serious: Yes (Death, Life-Threatening, Hospitalization, Disabling, Other)
  Sender: FDA-Public Use
  Company Number: CZ-PFIZER INC-2019106725

PATIENT
  Age: 75 Year
  Sex: Male
  Weight: 98 kg

DRUGS (5)
  1. SUTENT [Suspect]
     Active Substance: SUNITINIB MALATE
     Indication: RENAL CANCER
     Dosage: THE DOSAGE 1-0-0 (ONE IN THE MORNING)
     Route: 048
     Dates: start: 20190214, end: 20190220
  2. IKAMETIN [Concomitant]
     Indication: RENAL CANCER
     Dosage: LENGTH OF TREATMENT INDICATIVE, DOSAGE 1-0-0 (ONE IN THE MORNING)
     Route: 048
     Dates: end: 20190220
  3. CALCICHEW D3 [Concomitant]
     Active Substance: CALCIUM\CHOLECALCIFEROL
     Indication: HYPOCALCAEMIA
     Dosage: LONG-TERM MEDICATION, THE DOSAGE 1-0-0 (ONE IN THE MORNING)
     Route: 048
  4. BIOFENAC [ACECLOFENAC] [Concomitant]
     Indication: PAIN
     Dosage: LONG-TERM MEDICATION, THE DOSAGE 1-0-1 (ONE IN THE MORNING, ONE IN THE EVENING)
     Route: 048
     Dates: end: 20190220
  5. TRAMAL RETARD [Concomitant]
     Active Substance: TRAMADOL
     Indication: PAIN
     Dosage: LENGTH OF TREATMENT INDICATIVE, THE DOSAGE 1-0-1 (ONE IN THE MORNING, ONE IN THE EVENING)
     Route: 048
     Dates: end: 20190220

REACTIONS (1)
  - Multiple organ dysfunction syndrome [Fatal]

NARRATIVE: CASE EVENT DATE: 20190215
